FAERS Safety Report 10521562 (Version 1)
Quarter: 2014Q4

REPORT INFORMATION
  Report Type: Report from Study
  Country: CA (occurrence: CA)
  Receive Date: 20141016
  Receipt Date: 20141016
  Transmission Date: 20150528
  Serious: Yes (Other)
  Sender: FDA-Public Use
  Company Number: CA-JNJFOC-20141006894

PATIENT
  Age: 72 Year
  Sex: Male

DRUGS (2)
  1. REMICADE [Suspect]
     Active Substance: INFLIXIMAB
     Indication: PRODUCT USED FOR UNKNOWN INDICATION
     Route: 042
     Dates: start: 20140311
  2. REMICADE [Suspect]
     Active Substance: INFLIXIMAB
     Indication: PRODUCT USED FOR UNKNOWN INDICATION
     Route: 042
     Dates: start: 20141008

REACTIONS (8)
  - Cyanosis [Recovering/Resolving]
  - Heart rate irregular [Recovering/Resolving]
  - Tremor [Recovered/Resolved]
  - Infusion related reaction [Recovering/Resolving]
  - Blood pressure fluctuation [Recovering/Resolving]
  - Rheumatic disorder [Recovering/Resolving]
  - Oxygen saturation decreased [Recovering/Resolving]
  - Anxiety [Recovering/Resolving]

NARRATIVE: CASE EVENT DATE: 20141008
